FAERS Safety Report 10142354 (Version 2)
Quarter: 2014Q2

REPORT INFORMATION
  Report Type: Report from Study
  Country: US (occurrence: US)
  Receive Date: 20140429
  Receipt Date: 20140530
  Transmission Date: 20141212
  Serious: Yes (Other)
  Sender: FDA-Public Use
  Company Number: PHEH2014US008453

PATIENT
  Age: 57 Year
  Sex: Female
  Weight: 61.22 kg

DRUGS (13)
  1. EXTAVIA [Suspect]
     Indication: MULTIPLE SCLEROSIS
     Dosage: 0.25 MG, QOD
     Route: 058
     Dates: start: 20140127
  2. EXTAVIA [Suspect]
     Dosage: 0.3 MG, QOD
     Route: 058
     Dates: start: 201402
  3. LISINOPRIL [Concomitant]
     Dosage: 5 MG, DAILY
     Route: 048
  4. LIPITOR [Concomitant]
     Indication: CEREBRAL ARTERY STENOSIS
     Dosage: 10 MG, DAILY
     Route: 048
  5. MECLIZINE [Concomitant]
     Dosage: UNK, PRN
     Route: 048
  6. AMPYRA [Concomitant]
     Indication: GAIT DISTURBANCE
     Dosage: 10 MG, BID
     Route: 048
  7. NEURONTIN [Concomitant]
     Indication: SENSORY LOSS
     Dosage: 500 UKN, UNK (100-100-300) DAILY
     Route: 048
  8. NEURONTIN [Concomitant]
     Indication: PARAESTHESIA
  9. VITAMIN B12 [Concomitant]
     Dosage: UNK UKN, UNK
  10. VITAMIN D [Concomitant]
     Dosage: UNK UKN, UNK
  11. ASPIRIN [Concomitant]
     Indication: CEREBRAL ARTERY STENOSIS
     Dosage: 325 MG, DAILY
  12. ASPIRIN [Concomitant]
     Indication: ANEURYSM
  13. PROTONIX [Concomitant]
     Indication: BARRETT^S OESOPHAGUS
     Dosage: 40 MG, DAILY

REACTIONS (6)
  - Pleurisy [Unknown]
  - Dyspnoea [Unknown]
  - Pleuritic pain [Unknown]
  - Chest pain [Unknown]
  - Pneumonia [Recovered/Resolved]
  - Influenza like illness [Not Recovered/Not Resolved]
